FAERS Safety Report 10038619 (Version 1)
Quarter: 2014Q1

REPORT INFORMATION
  Report Type: Spontaneous
  Country: US (occurrence: US)
  Receive Date: 20140326
  Receipt Date: 20140326
  Transmission Date: 20141002
  Serious: Yes (Death)
  Sender: FDA-Public Use
  Company Number: US-GE HEALTHCARE MEDICAL DIAGNOSTICS-OSCN-PR-0901S-0042

PATIENT
  Age: 25 Year
  Sex: Female

DRUGS (7)
  1. OMNISCAN [Suspect]
     Indication: PRODUCT USED FOR UNKNOWN INDICATION
     Route: 042
     Dates: start: 20040607, end: 20040607
  2. OMNISCAN [Suspect]
     Indication: HYPERTENSION
     Route: 042
     Dates: start: 20060720, end: 20060720
  3. OMNISCAN [Suspect]
     Indication: HYPERTENSION
     Route: 042
     Dates: start: 20060807, end: 20060807
  4. OMNISCAN [Suspect]
     Indication: RENAL FAILURE CHRONIC
     Route: 042
     Dates: start: 20060814, end: 20060814
  5. OMNISCAN [Suspect]
     Indication: PYREXIA
  6. GADOLINIUM (UNSPECIFIED) [Suspect]
     Indication: PRODUCT USED FOR UNKNOWN INDICATION
     Route: 042
     Dates: start: 20031215, end: 20031215
  7. GADOLINIUM (UNSPECIFIED) [Suspect]
     Indication: PRODUCT USED FOR UNKNOWN INDICATION
     Route: 042
     Dates: start: 20060109, end: 20060109

REACTIONS (1)
  - Nephrogenic systemic fibrosis [Fatal]
